FAERS Safety Report 8788922 (Version 2)
Quarter: 2013Q4

REPORT INFORMATION
  Report Type: Report from Study
  Country: JP (occurrence: JP)
  Receive Date: 20120915
  Receipt Date: 20131105
  Transmission Date: 20140711
  Serious: Yes (Hospitalization)
  Sender: FDA-Public Use
  Company Number: JP-009507513-1209JPN003246

PATIENT
  Age: 49 Year
  Sex: Male
  Weight: 68 kg

DRUGS (8)
  1. PEGINTRON [Suspect]
     Indication: HEPATITIS C
     Dosage: 1.5 MICROGRAM PER KILOGRAM, QW
     Route: 058
     Dates: start: 20120517, end: 20120719
  2. PEGINTRON [Suspect]
     Dosage: 0.75 MICROGRAM PER KILOGRAM, QW
     Route: 058
     Dates: start: 20120726
  3. REBETOL [Suspect]
     Indication: HEPATITIS C
     Dosage: 800 MG, QD
     Route: 048
     Dates: start: 20120517, end: 20120724
  4. REBETOL [Suspect]
     Dosage: 600 MG, QD
     Route: 048
     Dates: start: 20120727
  5. TELAVIC [Suspect]
     Indication: HEPATITIS C
     Dosage: DOSE: 2250 MG, CUMULATIVE DOSE: 27000 MG
     Route: 048
     Dates: start: 20120517, end: 20120724
  6. GLYCRON (GLICLAZIDE) [Concomitant]
     Indication: HEPATITIS C
     Dosage: 6 DF, QD
     Route: 048
  7. LOXONIN [Concomitant]
     Indication: PROPHYLAXIS
     Dosage: FORMULATION: POR, IT IS SINGLE USE DURING 60 MG/DAY
     Route: 048
     Dates: start: 20120517
  8. CYTOTEC [Concomitant]
     Indication: PROPHYLAXIS
     Dosage: FORMULATION: POR, IT  IS SINGLE USE DURING 200MG/DAY
     Route: 048
     Dates: start: 20120517

REACTIONS (1)
  - Hepatic encephalopathy [Recovered/Resolved]
